FAERS Safety Report 23496530 (Version 1)
Quarter: 2024Q1

REPORT INFORMATION
  Report Type: Report from Study
  Country: FR (occurrence: FR)
  Receive Date: 20240208
  Receipt Date: 20240208
  Transmission Date: 20240410
  Serious: Yes (Other)
  Sender: FDA-Public Use
  Company Number: FR-PFIZER INC-PV202400018283

PATIENT
  Age: 41 Year
  Sex: Female

DRUGS (2)
  1. PEGVISOMANT [Suspect]
     Active Substance: PEGVISOMANT
     Indication: Albright^s disease
     Dosage: 10 MG, DAILY
  2. PEGVISOMANT [Suspect]
     Active Substance: PEGVISOMANT
     Indication: Acromegaly
     Dosage: 15 MG, DAILY

REACTIONS (2)
  - Cholestasis [Unknown]
  - Transaminases increased [Unknown]
